FAERS Safety Report 9587083 (Version 1)
Quarter: 2013Q4

REPORT INFORMATION
  Report Type: Report from Study
  Country: FR (occurrence: FR)
  Receive Date: 20131003
  Receipt Date: 20131003
  Transmission Date: 20140711
  Serious: Yes (Other)
  Sender: FDA-Public Use
  Company Number: FR-INCYTE CORPORATION-2013IN002256

PATIENT
  Age: 45 Year
  Sex: Male

DRUGS (1)
  1. INC424 [Suspect]
     Indication: MYELOFIBROSIS
     Dosage: 25 MG, BID
     Route: 048
     Dates: start: 20121217, end: 20130530

REACTIONS (1)
  - Transplant rejection [Not Recovered/Not Resolved]
